FAERS Safety Report 6733419-4 (Version None)
Quarter: 2010Q2

REPORT INFORMATION
  Report Type: 
  Country: None (occurrence: None)
  Receive Date: 20100520
  Receipt Date: 20100505
  Transmission Date: 20101027
  Serious: Yes (Hospitalization)
  Sender: FDA-Public Use
  Company Number: US-TYCO HEALTHCARE/MALLINCKRODT-T201001184

PATIENT
  Age: 27 Year
  Sex: Male

DRUGS (4)
  1. METHYLIN [Suspect]
     Indication: ATTENTION DEFICIT/HYPERACTIVITY DISORDER
     Dosage: 5 MG, BID
  2. METHYLIN [Suspect]
     Dosage: THREE EXTRA 5 MG DOSES
  3. CEFDINIR [Concomitant]
     Indication: SINUSITIS
  4. FEXOFENADINE HCL AND PSEUDOEPHEDRINE HCL [Concomitant]
     Indication: SINUSITIS

REACTIONS (3)
  - ACUTE MYOCARDIAL INFARCTION [None]
  - DRUG INTERACTION [None]
  - INTENTIONAL DRUG MISUSE [None]
